FAERS Safety Report 21075674 (Version 1)
Quarter: 2022Q3

REPORT INFORMATION
  Report Type: Spontaneous
  Country: US (occurrence: None)
  Receive Date: 20220712
  Receipt Date: 20220712
  Transmission Date: 20221026
  Serious: Yes (Life-Threatening, Hospitalization)
  Sender: FDA-Public Use
  Company Number: None

PATIENT
  Age: 73 Year
  Sex: Female

DRUGS (2)
  1. ZIPRASIDONE [Suspect]
     Active Substance: ZIPRASIDONE
  2. QUETIAPINE [Suspect]
     Active Substance: QUETIAPINE

REACTIONS (10)
  - Dyspnoea [None]
  - Oxygen saturation decreased [None]
  - COVID-19 [None]
  - Electrocardiogram QT prolonged [None]
  - Blood potassium increased [None]
  - Anxiety [None]
  - Delirium [None]
  - Blood creatine phosphokinase increased [None]
  - Neuroleptic malignant syndrome [None]
  - Embolic stroke [None]

NARRATIVE: CASE EVENT DATE: 20220111
